FAERS Safety Report 7007941-X (Version None)
Quarter: 2010Q3

REPORT INFORMATION
  Report Type: 
  Country: None (occurrence: None)
  Receive Date: 20100920
  Receipt Date: 20100831
  Transmission Date: 20110219
  Serious: Yes (Other)
  Sender: FDA-Public Use
  Company Number: 2010SP036904

PATIENT
  Age: 43 Year
  Sex: Female
  Weight: 115.5 kg

DRUGS (10)
  1. CERAZETTE (DESOGESTREL / 00754001/) (75 MCG) [Suspect]
     Indication: CONTRACEPTION
     Dosage: 1 DF;QD;PO
     Route: 048
     Dates: start: 20061017
  2. LANSOPRAZOLE [Concomitant]
  3. METFORMIN [Concomitant]
  4. OXYBUTYNIN [Concomitant]
  5. OLMESARTAN MEDOXOMIL [Concomitant]
  6. SIMVASTATIN [Concomitant]
  7. AMLODIPINE [Concomitant]
  8. BISOPROLOL [Concomitant]
  9. ASPIRIN [Concomitant]
  10. BETAMETHASONE [Concomitant]

REACTIONS (6)
  - DRUG EXPOSURE DURING PREGNANCY [None]
  - DYSPEPSIA [None]
  - GESTATIONAL DIABETES [None]
  - GLUCOSE TOLERANCE IMPAIRED [None]
  - OBESITY [None]
  - PREGNANCY [None]
